FAERS Safety Report 25186617 (Version 3)
Quarter: 2025Q2

REPORT INFORMATION
  Report Type: Report from Study
  Country: US (occurrence: US)
  Receive Date: 20250411
  Receipt Date: 20250507
  Transmission Date: 20250716
  Serious: Yes (Hospitalization, Other)
  Sender: JAZZ
  Company Number: US-JAZZ PHARMACEUTICALS-2025-US-007220

PATIENT
  Sex: Female

DRUGS (2)
  1. EPIDIOLEX [Suspect]
     Active Substance: CANNABIDIOL
     Indication: Lennox-Gastaut syndrome
     Dosage: 1.5 MILLILITER, BID
     Route: 048
     Dates: start: 202208
  2. EPIDIOLEX [Suspect]
     Active Substance: CANNABIDIOL
     Indication: Severe myoclonic epilepsy of infancy
     Dosage: 1.5 MILLILITER, BID
     Route: 048
     Dates: start: 202310

REACTIONS (5)
  - Hospitalisation [Unknown]
  - Seizure [Unknown]
  - Salivary hypersecretion [Not Recovered/Not Resolved]
  - Pyrexia [Unknown]
  - Product administration interrupted [Unknown]

NARRATIVE: CASE EVENT DATE: 20250101
